FAERS Safety Report 21948519 (Version 1)
Quarter: 2023Q1

REPORT INFORMATION
  Report Type: Spontaneous
  Country: US (occurrence: US)
  Receive Date: 20230203
  Receipt Date: 20230203
  Transmission Date: 20230418
  Serious: No
  Sender: FDA-Public Use
  Company Number: US-drreddys-SPO/USA/23/0159652

PATIENT
  Age: 87 Year
  Sex: Female

DRUGS (14)
  1. LENALIDOMIDE [Suspect]
     Active Substance: LENALIDOMIDE
     Indication: Essential hypertension
     Dates: start: 20221220
  2. LEVOFLOXACIN [Concomitant]
     Active Substance: LEVOFLOXACIN
     Indication: Product used for unknown indication
  3. ACYCLOVIR TAB 800MG [Concomitant]
     Indication: Product used for unknown indication
  4. BENZONATATE CAP 200MG [Concomitant]
     Indication: Product used for unknown indication
  5. DEXAMETHASONE [Concomitant]
     Active Substance: DEXAMETHASONE
     Indication: Product used for unknown indication
  6. FUROSEMIDE TAB 80MG [Concomitant]
     Indication: Product used for unknown indication
  7. GABAPENTIN TAB  800MG [Concomitant]
     Indication: Product used for unknown indication
  8. LORAZEPAM TAB 2MG [Concomitant]
     Indication: Product used for unknown indication
  9. METOPROLOL T TAB 100MG [Concomitant]
     Indication: Product used for unknown indication
  10. MULTIVITAMIN TAB [Concomitant]
     Indication: Product used for unknown indication
  11. PROCHLORPERA TAB 10MG [Concomitant]
     Indication: Product used for unknown indication
  12. SULFAMETHOXA TAB 800-160M [Concomitant]
     Indication: Product used for unknown indication
     Dosage: 800-160 M
  13. TYLENOL AB 325MG [Concomitant]
     Indication: Product used for unknown indication
  14. WARFARIN SOD TAB 5MG [Concomitant]
     Indication: Product used for unknown indication

REACTIONS (2)
  - Amnesia [Not Recovered/Not Resolved]
  - Product use in unapproved indication [Unknown]
